FAERS Safety Report 15673889 (Version 1)
Quarter: 2018Q4

REPORT INFORMATION
  Report Type: Report from Study
  Country: US (occurrence: US)
  Receive Date: 20181129
  Receipt Date: 20181129
  Transmission Date: 20190205
  Serious: Yes (Death, Other)
  Sender: FDA-Public Use
  Company Number: US-GILEAD-2018-0372199

PATIENT
  Age: 28 Year
  Sex: Female

DRUGS (6)
  1. TEZACAFTOR [Concomitant]
     Active Substance: TEZACAFTOR
     Dosage: UNK
  2. PULMOZYME [Concomitant]
     Active Substance: DORNASE ALFA
     Dosage: UNK
  3. HYPERTONIC SALINE SOLUTION [Concomitant]
     Active Substance: SODIUM CHLORIDE
     Dosage: 3% INHALATION SOLUTION
  4. AZTREONAM LYSINE [Suspect]
     Active Substance: AZTREONAM LYSINE
     Indication: CYSTIC FIBROSIS
     Dosage: 75 MG, TID FOR 28 DAYS, FOLLOWED BY 28 DAYS OFF, REPEAT CYCLE
     Route: 055
     Dates: start: 20180523, end: 201806
  5. COLISTIMETHATE [COLISTIMETHATE SODIUM] [Concomitant]
     Dosage: 150 MG INHALATION
  6. IVACAFTOR [Concomitant]
     Active Substance: IVACAFTOR

REACTIONS (1)
  - Death [Fatal]

NARRATIVE: CASE EVENT DATE: 201811
